FAERS Safety Report 25990743 (Version 1)
Quarter: 2025Q4

REPORT INFORMATION
  Report Type: Spontaneous
  Country: CN (occurrence: CN)
  Receive Date: 20251103
  Receipt Date: 20251103
  Transmission Date: 20260117
  Serious: Yes (Other)
  Sender: BAYER HEALTHCARE PHARMACEUTICALS INC.
  Company Number: CN-BAYER-2025A144958

PATIENT
  Age: 31 Year
  Sex: Female
  Weight: 75 kg

DRUGS (3)
  1. ULTRAVIST [Suspect]
     Active Substance: IOPROMIDE
     Indication: Computerised tomogram abdomen
     Dosage: 95 ML, ONCE
     Route: 042
     Dates: start: 20251028, end: 20251028
  2. ULTRAVIST [Suspect]
     Active Substance: IOPROMIDE
     Indication: Cholelithiasis
  3. ULTRAVIST [Suspect]
     Active Substance: IOPROMIDE
     Indication: Cholecystitis chronic

REACTIONS (7)
  - Flushing [Recovering/Resolving]
  - Rash pruritic [Recovering/Resolving]
  - Amaurosis fugax [Recovering/Resolving]
  - Peripheral swelling [Recovering/Resolving]
  - Swelling [Recovering/Resolving]
  - Swelling face [Recovering/Resolving]
  - Heart rate decreased [None]

NARRATIVE: CASE EVENT DATE: 20251028
